FAERS Safety Report 25927529 (Version 1)
Quarter: 2025Q4

REPORT INFORMATION
  Report Type: Report from Study
  Country: US (occurrence: US)
  Receive Date: 20251015
  Receipt Date: 20251015
  Transmission Date: 20260118
  Serious: Yes (Other)
  Sender: ABBVIE
  Company Number: US-ABBVIE-6501863

PATIENT
  Sex: Male

DRUGS (8)
  1. VENETOCLAX [Suspect]
     Active Substance: VENETOCLAX
     Indication: Product used for unknown indication
     Route: 048
  2. VABYSMO [Suspect]
     Active Substance: FARICIMAB-SVOA
     Indication: Product used for unknown indication
     Route: 065
  3. AVASTIN [Suspect]
     Active Substance: BEVACIZUMAB
     Indication: Product used for unknown indication
     Route: 065
  4. GAZYVA [Suspect]
     Active Substance: OBINUTUZUMAB
     Indication: Product used for unknown indication
     Route: 065
  5. LUCENTIS [Suspect]
     Active Substance: RANIBIZUMAB
     Indication: Product used for unknown indication
     Route: 065
  6. LUTEIN\MINERALS\VITAMINS\ZEAXANTHIN [Concomitant]
     Active Substance: LUTEIN\MINERALS\VITAMINS\ZEAXANTHIN
     Indication: Product used for unknown indication
     Dosage: 1 TABLET BID BY MOUTH
     Route: 048
  7. COMBIGAN [Concomitant]
     Active Substance: BRIMONIDINE TARTRATE\TIMOLOL MALEATE
     Indication: Product used for unknown indication
     Dosage: 0.2%-0.5% OPHTHALMIC SOLUTION 1 GTT BID OU
  8. Artificial Tears [Concomitant]
     Indication: Product used for unknown indication

REACTIONS (11)
  - Retinal haemorrhage [Recovered/Resolved]
  - Photopsia [Unknown]
  - Vitreous floaters [Unknown]
  - Visual impairment [Unknown]
  - Neovascular age-related macular degeneration [Unknown]
  - Choroidal neovascularisation [Unknown]
  - Peripheral exudative haemorrhagic chorioretinopathy [Unknown]
  - Cataract nuclear [Unknown]
  - Angle closure glaucoma [Unknown]
  - Pseudophakia [Unknown]
  - Myopia [Unknown]
